FAERS Safety Report 5202458-7 (Version None)
Quarter: 2006Q4

REPORT INFORMATION
  Report Type: 
  Country: None (occurrence: None)
  Receive Date: 20061010
  Receipt Date: 20051028
  Transmission Date: 20070319
  Serious: Yes (Other)
  Sender: FDA-Public Use
  Company Number: 2005P1000514

PATIENT
  Age: 66 Year
  Sex: Male
  Weight: 55 kg

DRUGS (9)
  1. RETEPLASE [Suspect]
     Indication: ACUTE MYOCARDIAL INFARCTION
     Dosage: X1; IV
     Route: 042
     Dates: start: 20050502, end: 20050502
  2. ABCIXIMAB [Suspect]
     Indication: ACUTE MYOCARDIAL INFARCTION
     Dosage: SEE IMAGE
     Route: 042
     Dates: start: 20050502
  3. ABCIXIMAB [Suspect]
     Indication: ACUTE MYOCARDIAL INFARCTION
     Dosage: SEE IMAGE
     Route: 042
     Dates: start: 20050502
  4. ASPIRIN [Concomitant]
  5. BETA BLOCKING AGENTS [Concomitant]
  6. ACE INHIBITOR NOS [Concomitant]
  7. CHOLESTEROL-AND TRIGLYCERINE REDUCERS [Concomitant]
  8. DIURETICS [Concomitant]
  9. ANTIARRHYTHMICS, CLASS I AND III [Concomitant]

REACTIONS (1)
  - PULMONARY OEDEMA [None]
